FAERS Safety Report 23849622 (Version 2)
Quarter: 2024Q4

REPORT INFORMATION
  Report Type: Spontaneous
  Country: US (occurrence: US)
  Receive Date: 20240513
  Receipt Date: 20241226
  Transmission Date: 20250115
  Serious: No
  Sender: PFIZER
  Company Number: US-PFIZER INC-PV202300143017

PATIENT
  Age: 75 Year
  Sex: Female

DRUGS (1)
  1. IBRANCE [Suspect]
     Active Substance: PALBOCICLIB
     Indication: Breast cancer female
     Dosage: 100 MG, CYCLIC, (TAKE 1 PO DAILY FOR 3 WEEKS ON, 1 WEEK OFF)
     Route: 048

REACTIONS (2)
  - Swelling [Not Recovered/Not Resolved]
  - Limb mass [Not Recovered/Not Resolved]
